FAERS Safety Report 7528650-4 (Version None)
Quarter: 2011Q2

REPORT INFORMATION
  Report Type: 
  Country: None (occurrence: None)
  Receive Date: 20110607
  Receipt Date: 20040818
  Transmission Date: 20111010
  Serious: Yes (Other)
  Sender: FDA-Public Use
  Company Number: PHFR2004GB02708

PATIENT
  Sex: Male

DRUGS (1)
  1. CLOZARIL [Suspect]
     Indication: DELUSIONAL DISORDER, UNSPECIFIED TYPE
     Route: 048
     Dates: start: 20030327

REACTIONS (4)
  - UPPER LIMB FRACTURE [None]
  - SELF INJURIOUS BEHAVIOUR [None]
  - PELVIC FRACTURE [None]
  - SUICIDE ATTEMPT [None]
